FAERS Safety Report 13051676 (Version 1)
Quarter: 2016Q4

REPORT INFORMATION
  Report Type: Spontaneous
  Country: CN (occurrence: CN)
  Receive Date: 20161221
  Receipt Date: 20161221
  Transmission Date: 20170207
  Serious: Yes (Hospitalization, Other)
  Sender: FDA-Public Use
  Company Number: CN-ELI_LILLY_AND_COMPANY-CN201612006015

PATIENT
  Age: 64 Year
  Weight: 70 kg

DRUGS (7)
  1. HUMULIN 70/30 [Suspect]
     Active Substance: INSULIN HUMAN
     Indication: DIABETES MELLITUS
     Dosage: 10-12 U, EACH MORNING
     Route: 058
  2. HUMULIN 70/30 [Suspect]
     Active Substance: INSULIN HUMAN
     Dosage: 10-12 U, EACH MORNING
     Route: 058
     Dates: end: 201604
  3. HUMULIN 70/30 [Suspect]
     Active Substance: INSULIN HUMAN
     Dosage: 8-10 U, EACH EVENING
     Route: 058
  4. HUMULIN 70/30 [Suspect]
     Active Substance: INSULIN HUMAN
     Dosage: 18-22 U, EACH EVENING
     Route: 058
     Dates: start: 201604
  5. HUMALOG [Suspect]
     Active Substance: INSULIN LISPRO
     Indication: DIABETES MELLITUS
     Dosage: UNK, UNKNOWN
     Route: 065
  6. HUMULIN 70/30 [Suspect]
     Active Substance: INSULIN HUMAN
     Dosage: 8-10 U, EACH EVENING
     Route: 058
     Dates: end: 201604
  7. HUMULIN 70/30 [Suspect]
     Active Substance: INSULIN HUMAN
     Dosage: 22-26 U, EACH MORNING
     Route: 058
     Dates: start: 201604

REACTIONS (8)
  - Pancreatic disorder [Recovering/Resolving]
  - Syncope [Recovering/Resolving]
  - Haematuria [Unknown]
  - Cataract [Unknown]
  - Dizziness [Recovering/Resolving]
  - Blood glucose abnormal [Recovering/Resolving]
  - Cystitis [Unknown]
  - Dizziness [Recovering/Resolving]

NARRATIVE: CASE EVENT DATE: 2015
